FAERS Safety Report 15924703 (Version 9)
Quarter: 2019Q2

REPORT INFORMATION
  Report Type: Spontaneous
  Country: SK (occurrence: SK)
  Receive Date: 20190206
  Receipt Date: 20190410
  Transmission Date: 20190711
  Serious: Yes (Life-Threatening, Hospitalization, Other)
  Sender: FDA-Public Use
  Company Number: PHHY2019SK018222

PATIENT
  Age: 16 Year
  Sex: Female

DRUGS (1)
  1. DICLOFENAC [Suspect]
     Active Substance: DICLOFENAC
     Indication: BACK PAIN
     Dosage: UNK
     Route: 065

REACTIONS (21)
  - Blood urea increased [Recovered/Resolved]
  - Pain [Recovering/Resolving]
  - Metabolic acidosis [Recovered/Resolved]
  - Fatigue [Unknown]
  - Intervertebral disc protrusion [Unknown]
  - Dysuria [Recovered/Resolved]
  - Renal tubular dysfunction [Recovered/Resolved]
  - Glomerular filtration rate decreased [Recovered/Resolved]
  - Inflammation [Unknown]
  - Decreased appetite [Unknown]
  - Tubulointerstitial nephritis [Recovered/Resolved]
  - Proteinuria [Recovered/Resolved]
  - Hypertension [Unknown]
  - Vomiting [Recovered/Resolved]
  - Drug ineffective [Unknown]
  - Acute kidney injury [Recovered/Resolved]
  - Polyuria [Recovered/Resolved]
  - Sciatica [Unknown]
  - Nephropathy toxic [Recovering/Resolving]
  - Mucosal dryness [Recovering/Resolving]
  - Blood creatinine increased [Recovered/Resolved]
